FAERS Safety Report 8292772 (Version 2)
Quarter: 2013Q4

REPORT INFORMATION
  Report Type: Report from Study
  Country: MX (occurrence: MX)
  Receive Date: 20111215
  Receipt Date: 20131219
  Transmission Date: 20140711
  Serious: No
  Sender: FDA-Public Use
  Company Number: PHHY2011MX108736

PATIENT
  Age: 76 Year
  Sex: Female

DRUGS (3)
  1. ACLASTA [Suspect]
     Indication: OSTEOPOROSIS
     Dosage: 5 MG/100 ML 1 APPLICATION EACH YEAR
     Route: 042
     Dates: start: 200912
  2. ACLASTA [Suspect]
     Dosage: 5 MG/100 ML 1 APPLICATION EACH YEAR
     Route: 042
     Dates: start: 2013
  3. ENALAPRIL [Concomitant]
     Indication: HYPERTENSION
     Dosage: UNK UKN, UNK

REACTIONS (1)
  - Bone pain [Recovering/Resolving]
